FAERS Safety Report 19521424 (Version 2)
Quarter: 2022Q4

REPORT INFORMATION
  Report Type: Spontaneous
  Country: DE (occurrence: DE)
  Receive Date: 20210712
  Receipt Date: 20221102
  Transmission Date: 20230112
  Serious: Yes (Hospitalization)
  Sender: FDA-Public Use
  Company Number: DE-ADRED-06623-01

PATIENT
  Age: 63 Year
  Sex: Male
  Weight: 96 kg

DRUGS (5)
  1. METOPROLOL [Suspect]
     Active Substance: METOPROLOL
     Indication: Product used for unknown indication
     Dosage: 95 MILLIGRAM DAILY;  1-0-1-0
     Route: 048
  2. VALSARTAN [Suspect]
     Active Substance: VALSARTAN
     Indication: Product used for unknown indication
     Dosage: 160 MILLIGRAM DAILY;  1-0-0-0, STRENGTH : 160MG
     Route: 048
  3. ATORVASTATIN [Concomitant]
     Active Substance: ATORVASTATIN
     Indication: Product used for unknown indication
     Dosage: 60 MILLIGRAM DAILY;  0-0-1-0
     Route: 048
  4. ALLOPURINOL [Concomitant]
     Active Substance: ALLOPURINOL
     Indication: Product used for unknown indication
     Dosage: .5 DOSAGE FORMS DAILY; 300 MG, 0.5-0-0-0
     Route: 048
  5. EDOXABAN TOSYLATE [Concomitant]
     Active Substance: EDOXABAN TOSYLATE
     Indication: Product used for unknown indication
     Dosage: 60 MILLIGRAM DAILY;  1-0-0-0, STRENGTH : 60 MG
     Route: 048

REACTIONS (6)
  - Fatigue [Unknown]
  - Circulatory collapse [Unknown]
  - Headache [Unknown]
  - Hypotension [Unknown]
  - Product prescribing error [Unknown]
  - Product monitoring error [Unknown]
